FAERS Safety Report 8045257-3 (Version None)
Quarter: 2012Q1

REPORT INFORMATION
  Report Type: 
  Country: None (occurrence: None)
  Receive Date: 20120113
  Receipt Date: 20120104
  Transmission Date: 20120608
  Serious: Yes (Disabling, Other)
  Sender: FDA-Public Use
  Company Number: FI-PFIZER INC-2012007114

PATIENT
  Age: 50 Year
  Sex: Male

DRUGS (4)
  1. DIFORMIN RETARD [Concomitant]
     Indication: DIABETES MELLITUS
     Dosage: 500 MG, 2X/DAY
     Dates: start: 20111104
  2. RAMIPRIL [Suspect]
     Indication: HYPERTENSION
     Dosage: 2.5 MG, 1X/DAY
     Route: 048
     Dates: start: 20111122, end: 20111222
  3. LITALGIN [Concomitant]
     Indication: ABDOMINAL PAIN
     Dosage: 1 DF, 3 TIMES A DAY IF NEEDED
     Dates: start: 20060214
  4. BISOPROLOL [Concomitant]
     Indication: HYPERTENSION
     Dosage: 5 MG, 1/2 TABLET, TWICE A DAY
     Dates: start: 20040315

REACTIONS (2)
  - LOCALISED INFECTION [None]
  - TOXIC EPIDERMAL NECROLYSIS [None]
